FAERS Safety Report 14699500 (Version 1)
Quarter: 2018Q1

REPORT INFORMATION
  Report Type: Spontaneous
  Country: US (occurrence: US)
  Receive Date: 20180329
  Receipt Date: 20180329
  Transmission Date: 20180509
  Serious: Yes (Other)
  Sender: FDA-Public Use
  Company Number: None

PATIENT
  Age: 26 Year
  Sex: Male
  Weight: 84 kg

DRUGS (2)
  1. GLATIRAMER ACETATE 40 MG SQ THREE TIMES WEEKLY [Concomitant]
     Active Substance: GLATIRAMER ACETATE
     Dates: start: 20180307, end: 20180328
  2. GLATIRAMER ACETATE. [Suspect]
     Active Substance: GLATIRAMER ACETATE
     Indication: MULTIPLE SCLEROSIS
     Dosage: ?          OTHER FREQUENCY:SQ 3XWKLY;?
     Route: 058
     Dates: start: 20180307, end: 20180328

REACTIONS (2)
  - Pyrexia [None]
  - Musculoskeletal stiffness [None]

NARRATIVE: CASE EVENT DATE: 20180329
